FAERS Safety Report 11067855 (Version 1)
Quarter: 2015Q2

REPORT INFORMATION
  Report Type: Spontaneous
  Country: US (occurrence: None)
  Receive Date: 20150424
  Receipt Date: 20150424
  Transmission Date: 20150821
  Serious: Yes (Other)
  Sender: FDA-Public Use
  Company Number: None

PATIENT
  Age: 76 Year
  Sex: Female
  Weight: 127 kg

DRUGS (8)
  1. CELEXA [Concomitant]
     Active Substance: CITALOPRAM HYDROBROMIDE
  2. BIOTIN [Concomitant]
     Active Substance: BIOTIN
  3. VITAMIN B12 [Concomitant]
     Active Substance: CYANOCOBALAMIN
  4. L-LYSINE [Concomitant]
     Active Substance: LYSINE
  5. MACU HEALTH [Concomitant]
  6. INDERAL [Concomitant]
     Active Substance: PROPRANOLOL HYDROCHLORIDE
  7. ATORVASTATIN CALCIUM TABS, 20MG [Suspect]
     Active Substance: ATORVASTATIN CALCIUM
     Indication: BLOOD CHOLESTEROL INCREASED
     Dosage: 20 MG, 1X A DAY, 1 @ BEDTIME, MOUTH
     Route: 048
     Dates: start: 20150201, end: 20150331
  8. CRANBERRY. [Concomitant]
     Active Substance: CRANBERRY

REACTIONS (2)
  - Hepatic failure [None]
  - Product substitution issue [None]

NARRATIVE: CASE EVENT DATE: 20150331
